FAERS Safety Report 8352438-8 (Version None)
Quarter: 2012Q2

REPORT INFORMATION
  Report Type: 
  Country: None (occurrence: None)
  Receive Date: 20120511
  Receipt Date: 20120503
  Transmission Date: 20120825
  Serious: Yes (Other)
  Sender: FDA-Public Use
  Company Number: US-ABBOTT-12P-163-0932413-00

PATIENT
  Sex: Male
  Weight: 85.352 kg

DRUGS (7)
  1. CYMBALTA [Concomitant]
     Indication: PRODUCT USED FOR UNKNOWN INDICATION
     Route: 048
  2. METHOTREXATE [Concomitant]
     Indication: CROHN'S DISEASE
  3. HUMIRA [Suspect]
     Dosage: STOPPED MEDICATION FOR 3 WEEKS
     Route: 058
     Dates: start: 20120506
  4. VITAMIN B-12 [Concomitant]
     Indication: PRODUCT USED FOR UNKNOWN INDICATION
  5. HUMIRA [Suspect]
     Indication: CROHN'S DISEASE
     Route: 058
     Dates: end: 20120415
  6. UNKNOWN MEDICATIONS [Concomitant]
     Indication: PRODUCT USED FOR UNKNOWN INDICATION
  7. PREDNISONE [Concomitant]
     Indication: ADRENAL INSUFFICIENCY
     Route: 048

REACTIONS (6)
  - MOBILITY DECREASED [None]
  - PAIN [None]
  - ADRENAL INSUFFICIENCY [None]
  - ROTATOR CUFF SYNDROME [None]
  - MUSCULOSKELETAL PAIN [None]
  - EXOSTOSIS [None]
